FAERS Safety Report 7443383-0 (Version None)
Quarter: 2011Q2

REPORT INFORMATION
  Report Type: 
  Country: None (occurrence: None)
  Receive Date: 20110428
  Receipt Date: 20101029
  Transmission Date: 20111010
  Serious: Yes (Hospitalization)
  Sender: FDA-Public Use
  Company Number: US-BAYER-201020840NA

PATIENT
  Age: 30 Year
  Sex: Female
  Weight: 59 kg

DRUGS (4)
  1. LOPID [Concomitant]
     Indication: BLOOD TRIGLYCERIDES INCREASED
     Dosage: 600 MG, BID
  2. GEMFIBROZIL [Concomitant]
     Indication: BLOOD CHOLESTEROL INCREASED
     Dosage: UNK
     Dates: start: 20070101
  3. MULTI-VITAMIN [Concomitant]
     Dosage: UNK UNK, QD
  4. YAZ [Suspect]
     Indication: PRODUCT USED FOR UNKNOWN INDICATION
     Dosage: AS USED DOSE: UNK
     Route: 048
     Dates: start: 20070501, end: 20080214

REACTIONS (7)
  - GALLBLADDER DISORDER [None]
  - NAUSEA [None]
  - CHOLELITHIASIS [None]
  - BILIARY DYSKINESIA [None]
  - PANCREATITIS [None]
  - ABDOMINAL PAIN [None]
  - VOMITING [None]
